FAERS Safety Report 4315863-8 (Version None)
Quarter: 2004Q1

REPORT INFORMATION
  Report Type: 
  Country: None (occurrence: None)
  Receive Date: 20040310
  Receipt Date: 20040224
  Transmission Date: 20041129
  Serious: Yes (Disabling)
  Sender: FDA-Public Use
  Company Number: 2002-101685-NL

PATIENT
  Age: 25 Year
  Sex: Female
  Weight: 86 kg

DRUGS (2)
  1. NUVARING [Suspect]
     Indication: CONTRACEPTION
     Dosage: VAGINAL
     Route: 067
     Dates: start: 20020601, end: 20021018
  2. THYROID TAB [Concomitant]

REACTIONS (6)
  - ANTEPARTUM HAEMORRHAGE [None]
  - BED REST [None]
  - COMPLICATIONS OF MATERNAL EXPOSURE TO THERAPEUTIC DRUGS [None]
  - INDUCED LABOUR [None]
  - PLACENTAL DISORDER [None]
  - UNINTENDED PREGNANCY [None]
